FAERS Safety Report 10285439 (Version 1)
Quarter: 2014Q3

REPORT INFORMATION
  Report Type: Spontaneous
  Country: SE (occurrence: SE)
  Receive Date: 20140709
  Receipt Date: 20140709
  Transmission Date: 20150326
  Serious: Yes (Hospitalization)
  Sender: FDA-Public Use
  Company Number: SE-ACCORD-024576

PATIENT
  Age: 79 Year
  Sex: Male

DRUGS (11)
  1. TROMBYL [Concomitant]
     Active Substance: ASPIRIN
  2. ATENOLOL ACCORD [Concomitant]
  3. FOLACIN [Concomitant]
     Active Substance: FOLIC ACID
  4. PREDNISOLON ALTERNOVA [Concomitant]
  5. AMLODIPIN STADA [Concomitant]
  6. DONEPEZIL ACCORD [Suspect]
     Active Substance: DONEPEZIL
     Indication: DEMENTIA
     Dates: start: 20131128, end: 20140428
  7. CANODERM [Concomitant]
  8. SIMVASTATIN SANDOZ [Concomitant]
     Active Substance: SIMVASTATIN
  9. ALLOPURINOL NYCOMED [Concomitant]
  10. AMILOFERM [Concomitant]
     Dosage: 5 MG/50 MG TABLETT
  11. ALVEDON [Concomitant]
     Active Substance: ACETAMINOPHEN
     Dosage: TABLET WITH MODIFIED RELEASE

REACTIONS (3)
  - Orthostatic hypotension [Recovered/Resolved]
  - Injury [Unknown]
  - Dizziness [Recovered/Resolved]
